FAERS Safety Report 5017156-2 (Version None)
Quarter: 2006Q2

REPORT INFORMATION
  Report Type: 
  Country: None (occurrence: None)
  Receive Date: 20060525
  Receipt Date: 20060518
  Transmission Date: 20061013
  Serious: Yes (Hospitalization, Other)
  Sender: FDA-Public Use
  Company Number: 2006AP000377

PATIENT
  Age: 23 Year
  Sex: Male

DRUGS (12)
  1. CEFAZOLIN [Suspect]
     Indication: PROPHYLAXIS
     Dosage: 1 GM; 1X; IV
     Route: 042
  2. DESFLURANE [Concomitant]
  3. FENTANYL [Concomitant]
  4. PROPOFOL [Concomitant]
  5. MIDAZOLAM HCL [Concomitant]
  6. NIMBEX [Concomitant]
  7. MORPHINE SULFATE [Concomitant]
  8. KETOROLAC [Concomitant]
  9. ONDANSETRON HCL [Concomitant]
  10. DOCUSATE SODIUM [Concomitant]
  11. ACETAMINOPHEN [Concomitant]
  12. HYDROCODONE [Concomitant]

REACTIONS (9)
  - ALBUMINURIA [None]
  - ARTHRALGIA [None]
  - ASTHENIA [None]
  - BLOOD CREATININE INCREASED [None]
  - JOINT SWELLING [None]
  - PYREXIA [None]
  - SERUM SICKNESS [None]
  - URINARY CASTS [None]
  - URTICARIA GENERALISED [None]
